FAERS Safety Report 12986128 (Version 1)
Quarter: 2016Q4

REPORT INFORMATION
  Report Type: Spontaneous
  Country: US (occurrence: US)
  Receive Date: 20161128
  Receipt Date: 20161128
  Transmission Date: 20170207
  Serious: No
  Sender: FDA-Public Use
  Company Number: None

PATIENT
  Age: 32 Year

DRUGS (1)
  1. DEPO-PROVERA [Suspect]
     Active Substance: MEDROXYPROGESTERONE ACETATE
     Dosage: ?          QUANTITY:THING?.I N I. .\.;?

REACTIONS (6)
  - Mood swings [None]
  - Haemorrhage [None]
  - Alopecia [None]
  - Depression [None]
  - Weight increased [None]
  - Anxiety [None]

NARRATIVE: CASE EVENT DATE: 20150108
